FAERS Safety Report 5846846-4 (Version None)
Quarter: 2008Q3

REPORT INFORMATION
  Report Type: 
  Country: None (occurrence: None)
  Receive Date: 20080815
  Receipt Date: 20080807
  Transmission Date: 20090109
  Serious: Yes (Disabling)
  Sender: FDA-Public Use
  Company Number: PHBS2008NL05374

PATIENT
  Age: 14 Year
  Sex: Male
  Weight: 31 kg

DRUGS (3)
  1. BACLOFEN [Suspect]
     Indication: CEREBRAL PALSY
     Dosage: 40 UG/DAY
     Route: 037
  2. BACLOFEN [Suspect]
     Indication: MUSCLE SPASTICITY
     Dosage: 76 UG/DAY
     Route: 037
  3. BACLOFEN [Suspect]
     Dosage: 110 UG/DAY
     Route: 037

REACTIONS (11)
  - BRADYCARDIA [None]
  - DECREASED APPETITE [None]
  - DRY MOUTH [None]
  - DYSARTHRIA [None]
  - DYSPHAGIA [None]
  - DYSPNOEA [None]
  - HEADACHE [None]
  - HYPOTENSION [None]
  - IMPLANT SITE SWELLING [None]
  - LETHARGY [None]
  - NAUSEA [None]
